FAERS Safety Report 6838299-4 (Version None)
Quarter: 2010Q3

REPORT INFORMATION
  Report Type: 
  Country: None (occurrence: None)
  Receive Date: 20100709
  Receipt Date: 20100623
  Transmission Date: 20110219
  Serious: Yes (Other)
  Sender: FDA-Public Use
  Company Number: CN-JNJFOC-20100509653

PATIENT
  Age: 54 Year
  Sex: Female
  Weight: 55 kg

DRUGS (2)
  1. DACOGEN [Suspect]
     Indication: MYELODYSPLASTIC SYNDROME
     Dosage: 22.5 MG, 1 IN 8 HOURS, INTRAVENOUS; CYCE 2
     Route: 042
     Dates: start: 20100414, end: 20100416
  2. DACOGEN [Suspect]
     Indication: MYELODYSPLASTIC SYNDROME
     Dosage: 22.5 MG, 1 IN 8 HOURS, INTRAVENOUS; CYCE 2
     Route: 042
     Dates: start: 20100613

REACTIONS (8)
  - ARTHRALGIA [None]
  - HAEMOGLOBIN DECREASED [None]
  - JOINT SWELLING [None]
  - NEUTROPHIL COUNT DECREASED [None]
  - OSTEOARTHRITIS [None]
  - PLATELET COUNT DECREASED [None]
  - PYREXIA [None]
  - WHITE BLOOD CELL COUNT DECREASED [None]
